FAERS Safety Report 4274867-4 (Version None)
Quarter: 2004Q1

REPORT INFORMATION
  Report Type: 
  Country: None (occurrence: None)
  Receive Date: 20040115
  Receipt Date: 20040107
  Transmission Date: 20041129
  Serious: Yes (Hospitalization, Other)
  Sender: FDA-Public Use
  Company Number: USA-2002-0002971

PATIENT
  Age: 43 Year
  Sex: Male
  Weight: 56.9718 kg

DRUGS (15)
  1. OXYCONTIN [Suspect]
     Indication: PAIN
     Dosage: SEE IMAGE
     Route: 048
  2. OXYCODONE HCL [Suspect]
     Indication: PAIN
     Dosage: 5 MG, Q4H PRN,ORAL
     Route: 048
  3. PAXIL [Concomitant]
  4. XANAX [Concomitant]
  5. COLOSTRUM (COLOSTRUM) [Concomitant]
  6. CELEBREX [Concomitant]
  7. GLUCOSAMINE W/CHONDROITIN SULFATES (ASCORBIC ACID, MAGNESE, CHONDROITI [Concomitant]
  8. CELEXA [Concomitant]
  9. ZYPREXA [Concomitant]
  10. REMERON [Concomitant]
  11. SENNOSIDE (SENNOSIDE A+B) [Concomitant]
  12. METHADONE (METHADONE) [Concomitant]
  13. TENORMIN [Concomitant]
  14. TRAZODONE (TRAZADONE) TABLET [Concomitant]
  15. TYLOX [Concomitant]

REACTIONS (32)
  - BLOOD ALKALINE PHOSPHATASE INCREASED [None]
  - BURNING SENSATION [None]
  - CARDIAC ARREST [None]
  - COMA [None]
  - CONFUSIONAL STATE [None]
  - DEPRESSION [None]
  - DRUG ABUSER [None]
  - DRUG DEPENDENCE [None]
  - DRUG TOLERANCE [None]
  - DRUG TOXICITY [None]
  - DRUG WITHDRAWAL SYNDROME [None]
  - DYSURIA [None]
  - EYE INFECTION [None]
  - FALL [None]
  - HEADACHE [None]
  - HYPOAESTHESIA [None]
  - INFLUENZA LIKE ILLNESS [None]
  - INSOMNIA [None]
  - INTENTIONAL OVERDOSE [None]
  - IRRITABILITY [None]
  - MULTIPLE DRUG OVERDOSE [None]
  - MYCOPLASMA INFECTION [None]
  - NERVOUSNESS [None]
  - PAIN [None]
  - PAIN IN EXTREMITY [None]
  - PARAESTHESIA [None]
  - PNEUMONIA ASPIRATION [None]
  - PROSTATITIS [None]
  - RESPIRATORY ARREST [None]
  - STRESS FRACTURE [None]
  - TREMOR [None]
  - WEIGHT DECREASED [None]
